FAERS Safety Report 21217524 (Version 1)
Quarter: 2022Q3

REPORT INFORMATION
  Report Type: Spontaneous
  Country: US (occurrence: None)
  Receive Date: 20220815
  Receipt Date: 20220815
  Transmission Date: 20221026
  Serious: Yes (unspecified)
  Sender: FDA-Public Use
  Company Number: None

PATIENT
  Age: 68 Year
  Sex: Female

DRUGS (19)
  1. IBRANCE [Suspect]
     Active Substance: PALBOCICLIB
     Indication: Breast cancer
     Dosage: FREQUENCY : DAILY;?
     Route: 048
     Dates: start: 202207
  2. NOVOLOG [Concomitant]
     Active Substance: INSULIN ASPART
  3. clotrimazole solution [Concomitant]
  4. TRULICITY [Concomitant]
     Active Substance: DULAGLUTIDE
  5. LETROZOLE [Concomitant]
     Active Substance: LETROZOLE
  6. FENOFIBRATE [Concomitant]
     Active Substance: FENOFIBRATE
  7. LOPERAMIDE [Concomitant]
     Active Substance: LOPERAMIDE
  8. OXYCODONE AND ACETAMINOPHEN [Concomitant]
     Active Substance: ACETAMINOPHEN\OXYCODONE HYDROCHLORIDE
  9. JARDIANCE [Concomitant]
     Active Substance: EMPAGLIFLOZIN
  10. ALBUTEROL [Concomitant]
     Active Substance: ALBUTEROL
  11. LEVOTHYROXINE [Concomitant]
     Active Substance: LEVOTHYROXINE
  12. ESCITALOPRAM [Concomitant]
     Active Substance: ESCITALOPRAM OXALATE
  13. EZETIMIBE\SIMVASTATIN [Concomitant]
     Active Substance: EZETIMIBE\SIMVASTATIN
  14. OMEPRAZOLE [Concomitant]
     Active Substance: OMEPRAZOLE
  15. carvediolol [Concomitant]
  16. GABAPENTIN [Concomitant]
     Active Substance: GABAPENTIN
  17. ONDANSETRON [Concomitant]
     Active Substance: ONDANSETRON
  18. LOSARTAN [Concomitant]
     Active Substance: LOSARTAN
  19. METFORMIN [Concomitant]
     Active Substance: METFORMIN HYDROCHLORIDE

REACTIONS (1)
  - Anaemia [None]

NARRATIVE: CASE EVENT DATE: 20220801
